FAERS Safety Report 8144997-5 (Version None)
Quarter: 2012Q1

REPORT INFORMATION
  Report Type: 
  Country: None (occurrence: None)
  Receive Date: 20120217
  Receipt Date: 20120207
  Transmission Date: 20120608
  Serious: No
  Sender: FDA-Public Use
  Company Number: AR-SANOFI-AVENTIS-2011SA082558

PATIENT
  Age: 70 Year

DRUGS (3)
  1. ALL OTHER THERAPEUTIC PRODUCTS [Concomitant]
     Route: 065
  2. ANTINEOPLASTIC AGENTS [Concomitant]
     Indication: HEAD AND NECK CANCER
     Route: 065
  3. TAXOTERE [Suspect]
     Indication: HEAD AND NECK CANCER
     Route: 042
     Dates: start: 20111001

REACTIONS (1)
  - BACK PAIN [None]
